FAERS Safety Report 6828855-1 (Version None)
Quarter: 2010Q3

REPORT INFORMATION
  Report Type: 
  Country: None (occurrence: None)
  Receive Date: 20100709
  Receipt Date: 20070221
  Transmission Date: 20110219
  Serious: No
  Sender: FDA-Public Use
  Company Number: US-PFIZER INC-2007014544

PATIENT
  Sex: Female
  Weight: 68.49 kg

DRUGS (8)
  1. CHANTIX [Suspect]
     Indication: SMOKING CESSATION THERAPY
     Route: 048
     Dates: start: 20070126
  2. DILANTIN [Concomitant]
  3. CARAFATE [Concomitant]
  4. VYTORIN [Concomitant]
  5. ACIPHEX [Concomitant]
  6. LISINOPRIL [Concomitant]
  7. METOPROLOL [Concomitant]
  8. ACETYLSALICYLIC ACID [Concomitant]

REACTIONS (1)
  - HEADACHE [None]
